FAERS Safety Report 22264511 (Version 1)
Quarter: 2023Q2

REPORT INFORMATION
  Report Type: Spontaneous
  Country: CA (occurrence: CA)
  Receive Date: 20230428
  Receipt Date: 20230428
  Transmission Date: 20230722
  Serious: Yes (Other)
  Sender: FDA-Public Use
  Company Number: CA-KI BIOPHARMA, LLC-2023KAM00009

PATIENT
  Age: 32 Year
  Sex: Female

DRUGS (11)
  1. HUMAN RHO(D) IMMUNE GLOBULIN [Suspect]
     Active Substance: HUMAN RHO(D) IMMUNE GLOBULIN
     Indication: Prophylaxis
     Dosage: FIRST PREGNANCY; FIRST INJECTION
  2. HUMAN RHO(D) IMMUNE GLOBULIN [Suspect]
     Active Substance: HUMAN RHO(D) IMMUNE GLOBULIN
     Dosage: FIRST PREGNANCY; POST-PARTUM; GRADED 10%, 30%, 60% EVERY 30 MINUTES
     Route: 042
  3. HUMAN RHO(D) IMMUNE GLOBULIN [Suspect]
     Active Substance: HUMAN RHO(D) IMMUNE GLOBULIN
     Dosage: SECOND PREGNANCY; SINGLE STEP
  4. HUMAN RHO(D) IMMUNE GLOBULIN [Suspect]
     Active Substance: HUMAN RHO(D) IMMUNE GLOBULIN
     Dosage: SUBSEQUENT PREGNANCIES [3/4]; 3-STEP GRADED
     Route: 042
  5. HUMAN RHO(D) IMMUNE GLOBULIN [Suspect]
     Active Substance: HUMAN RHO(D) IMMUNE GLOBULIN
     Dosage: 15 ?G; CURRENT PREGNANCY; STEP 1
  6. HUMAN RHO(D) IMMUNE GLOBULIN [Suspect]
     Active Substance: HUMAN RHO(D) IMMUNE GLOBULIN
     Dosage: 30 ?G; CURRENT PREGNANCY; STEP 2
  7. HUMAN RHO(D) IMMUNE GLOBULIN [Suspect]
     Active Substance: HUMAN RHO(D) IMMUNE GLOBULIN
     Dosage: 60 ?G; CURRENT PREGNANCY; STEP 3
  8. HUMAN RHO(D) IMMUNE GLOBULIN [Suspect]
     Active Substance: HUMAN RHO(D) IMMUNE GLOBULIN
     Dosage: 195 ?G; CURRENT PREGNANCY; STEP 4
  9. DIPHENHYDRAMINE [Concomitant]
     Active Substance: DIPHENHYDRAMINE
  10. PREDNISONE [Concomitant]
     Active Substance: PREDNISONE
  11. LORATADINE [Concomitant]
     Active Substance: LORATADINE

REACTIONS (2)
  - Anaphylactoid reaction [Recovered/Resolved]
  - Off label use [Recovered/Resolved]
